FAERS Safety Report 21172858 (Version 1)
Quarter: 2022Q3

REPORT INFORMATION
  Report Type: Spontaneous
  Country: US (occurrence: None)
  Receive Date: 20220803
  Receipt Date: 20220803
  Transmission Date: 20221027
  Serious: Yes (unspecified)
  Sender: FDA-Public Use
  Company Number: None

PATIENT
  Age: 57 Year
  Sex: Female
  Weight: 60.75 kg

DRUGS (4)
  1. MAGNESIUM CITRATE [Suspect]
     Active Substance: MAGNESIUM CITRATE
     Indication: Preoperative care
     Route: 048
     Dates: start: 20220719, end: 20220719
  2. LEXAPRO [Concomitant]
     Active Substance: ESCITALOPRAM OXALATE
  3. TIROSINT [Concomitant]
     Active Substance: LEVOTHYROXINE SODIUM
  4. CLINDAMYCIN [Concomitant]
     Active Substance: CLINDAMYCIN

REACTIONS (9)
  - Nephrectomy [None]
  - Post procedural infection [None]
  - Staphylococcal infection [None]
  - Cellulitis [None]
  - Nasal discomfort [None]
  - Erythema [None]
  - Nasal oedema [None]
  - Recalled product [None]
  - Sensation of blood flow [None]

NARRATIVE: CASE EVENT DATE: 20220719
